FAERS Safety Report 10483317 (Version 4)
Quarter: 2014Q4

REPORT INFORMATION
  Report Type: Report from Study
  Country: JP (occurrence: JP)
  Receive Date: 20140930
  Receipt Date: 20141209
  Transmission Date: 20150528
  Serious: Yes (Death)
  Sender: FDA-Public Use
  Company Number: JP-PFIZER INC-2014263900

PATIENT
  Age: 81 Year
  Sex: Female
  Weight: 31.2 kg

DRUGS (16)
  1. MOBIC [Concomitant]
     Active Substance: MELOXICAM
     Dosage: 10 MG, 1X/DAY
     Route: 048
     Dates: end: 20140920
  2. XALKORI [Suspect]
     Active Substance: CRIZOTINIB
     Indication: NON-SMALL CELL LUNG CANCER
     Dosage: 250 MG, 2X/DAY
     Route: 048
     Dates: start: 20140910, end: 20140920
  3. ALDACTONE [Concomitant]
     Active Substance: SPIRONOLACTONE
     Dosage: 12.5 MG, 1X/DAY
     Route: 048
     Dates: end: 20140920
  4. MEMARY [Concomitant]
     Active Substance: MEMANTINE HYDROCHLORIDE
     Dosage: 2.5 MG, 1X/DAY
     Route: 048
     Dates: end: 20140920
  5. LANDSEN [Concomitant]
     Active Substance: CLONAZEPAM
     Dosage: 0.25 MG, 1X/DAY
     Route: 048
     Dates: end: 20140920
  6. LASIX [Concomitant]
     Active Substance: FUROSEMIDE
     Dosage: 5 MG, 1X/DAY
     Route: 048
     Dates: end: 20140920
  7. FOLIAMIN [Concomitant]
     Active Substance: FOLIC ACID
     Dosage: 5 MG, 3X/DAY
     Route: 048
     Dates: end: 20140920
  8. LANIRAPID [Concomitant]
     Active Substance: METILDIGOXIN
     Dosage: 0.1 MG, 1X/DAY
     Route: 048
     Dates: end: 20140920
  9. ARTIST [Concomitant]
     Active Substance: CARVEDILOL
     Dosage: 10 MG, 2X/DAY
     Route: 048
     Dates: end: 20140920
  10. MERISLON [Concomitant]
     Active Substance: BETAHISTINE MESILATE
     Dosage: 6 MG, 3X/DAY
     Route: 048
     Dates: end: 20140920
  11. FAMOTIDINE. [Concomitant]
     Active Substance: FAMOTIDINE
     Dosage: 10 MG, 1X/DAY
     Route: 048
     Dates: end: 20140920
  12. ADRENALINE [Concomitant]
     Active Substance: EPINEPHRINE
     Dosage: 1 MG FIVE TIMES DAILY
  13. EVISTA [Concomitant]
     Active Substance: RALOXIFENE HYDROCHLORIDE
     Dosage: 60 MG, 1X/DAY
     Route: 048
     Dates: end: 20140920
  14. RENIVACE [Concomitant]
     Active Substance: ENALAPRIL
     Dosage: 5 MG, 1X/DAY
     Route: 048
     Dates: end: 20140920
  15. WARFARIN [Concomitant]
     Active Substance: WARFARIN
     Dosage: 1.75 MG, 1X/DAY
     Route: 048
     Dates: end: 20140920
  16. PRIMPERAN [Concomitant]
     Active Substance: METOCLOPRAMIDE HYDROCHLORIDE
     Dosage: 5 MG, AS NEEDED
     Route: 048
     Dates: start: 20140913, end: 20140920

REACTIONS (3)
  - Vomiting [Fatal]
  - Asphyxia [Fatal]
  - Aspiration [Fatal]

NARRATIVE: CASE EVENT DATE: 20140913
